FAERS Safety Report 5445220-2 (Version None)
Quarter: 2007Q3

REPORT INFORMATION
  Report Type: 
  Country: None (occurrence: None)
  Receive Date: 20070730
  Receipt Date: 20070507
  Transmission Date: 20080115
  Serious: Yes (Other)
  Sender: FDA-Public Use
  Company Number: 241096

PATIENT
  Sex: Male

DRUGS (2)
  1. RITUXAN [Suspect]
     Indication: RHEUMATOID ARTHRITIS
     Dosage: 1000 MG, 2/WEEK, INTRAVENOUS
     Route: 036
     Dates: start: 20070504
  2. SOLU-MEDROL [Concomitant]

REACTIONS (1)
  - PHARYNGEAL OEDEMA [None]
